FAERS Safety Report 15109329 (Version 2)
Quarter: 2018Q3

REPORT INFORMATION
  Report Type: Spontaneous
  Country: ES (occurrence: ES)
  Receive Date: 20180705
  Receipt Date: 20180910
  Transmission Date: 20181010
  Serious: Yes (Life-Threatening, Hospitalization)
  Sender: FDA-Public Use
  Company Number: ES-ELI_LILLY_AND_COMPANY-ES201806014340

PATIENT
  Age: 64 Year
  Sex: Female

DRUGS (5)
  1. CARBOPLATINO [Suspect]
     Active Substance: CARBOPLATIN
     Indication: LUNG ADENOCARCINOMA STAGE IV
     Dosage: 380 MG, CYCLICAL
     Route: 042
     Dates: start: 20171103, end: 20171103
  2. DEXAMETASONA                       /00016001/ [Concomitant]
     Active Substance: DEXAMETHASONE
     Indication: PRODUCT USED FOR UNKNOWN INDICATION
     Dosage: UNK, UNKNOWN
     Route: 065
     Dates: start: 20171109, end: 20171121
  3. PIPERACILINA + TAZOBACTAM [Concomitant]
     Active Substance: PIPERACILLIN SODIUM\TAZOBACTAM SODIUM
     Indication: PRODUCT USED FOR UNKNOWN INDICATION
     Dosage: UNK UNK, UNKNOWN
     Route: 065
     Dates: start: 20171109, end: 20171111
  4. AMOXICILINA CLAV                   /01000301/ [Concomitant]
     Indication: PRODUCT USED FOR UNKNOWN INDICATION
     Dosage: UNK, DAILY
     Route: 065
     Dates: start: 20171109, end: 20171110
  5. PEMETREXED. [Suspect]
     Active Substance: PEMETREXED
     Indication: LUNG ADENOCARCINOMA STAGE IV
     Dosage: 500 MG, CYCLICAL
     Route: 042
     Dates: start: 20171103, end: 20171103

REACTIONS (4)
  - Hypertransaminasaemia [Recovering/Resolving]
  - Off label use [Unknown]
  - Hyperamylasaemia [Recovering/Resolving]
  - Agranulocytosis [Recovered/Resolved]

NARRATIVE: CASE EVENT DATE: 20171109
